FAERS Safety Report 6835219-3 (Version None)
Quarter: 2010Q3

REPORT INFORMATION
  Report Type: 
  Country: None (occurrence: None)
  Receive Date: 20100713
  Receipt Date: 20100629
  Transmission Date: 20110219
  Serious: Yes (Hospitalization)
  Sender: FDA-Public Use
  Company Number: FR-RANBAXY-2010RR-35240

PATIENT
  Age: 14 Year
  Sex: Male

DRUGS (5)
  1. AMLODIPINE [Suspect]
     Indication: HYPERTENSION
     Dosage: 10 MG, UNK
  2. AMLODIPINE [Suspect]
     Dosage: 30 MG, UNK
  3. TACROLIMUS [Suspect]
     Dosage: 0.1 MG/KG, UNK
  4. TACROLIMUS [Suspect]
     Dosage: 0.03 MG/KG, UNK
  5. AZATHIOPRINE [Concomitant]
     Dosage: 2 MG/KG, UNK

REACTIONS (3)
  - DIARRHOEA [None]
  - DRUG INTERACTION [None]
  - RENAL FAILURE ACUTE [None]
